FAERS Safety Report 24093842 (Version 1)
Quarter: 2024Q3

REPORT INFORMATION
  Report Type: Spontaneous
  Country: US (occurrence: US)
  Receive Date: 20240716
  Receipt Date: 20240716
  Transmission Date: 20241017
  Serious: Yes (Other)
  Sender: STRIDES
  Company Number: US-STRIDES ARCOLAB LIMITED-2023SP017046

PATIENT
  Age: 40 Year
  Sex: Male

DRUGS (1)
  1. PRAMIPEXOLE DIHYDROCHLORIDE [Suspect]
     Active Substance: PRAMIPEXOLE DIHYDROCHLORIDE
     Indication: Restless legs syndrome
     Dosage: 1 MILLIGRAM, AT BED TIME (NIGHTLY)
     Route: 065

REACTIONS (3)
  - Impulse-control disorder [Recovered/Resolved]
  - Drug ineffective [Unknown]
  - Condition aggravated [Unknown]
